FAERS Safety Report 18329664 (Version 1)
Quarter: 2020Q3

REPORT INFORMATION
  Report Type: Spontaneous
  Country: US (occurrence: US)
  Receive Date: 20200930
  Receipt Date: 20200930
  Transmission Date: 20201103
  Serious: No
  Sender: FDA-Public Use
  Company Number: US-PFIZER INC-2020342711

PATIENT
  Age: 64 Year
  Sex: Male

DRUGS (1)
  1. INLYTA [Suspect]
     Active Substance: AXITINIB
     Dosage: 5 MG,2X/DAY(TAKE 1 TABLET (5MG TOTAL) BY MOUTH EVERY 12 (TWELVE) HOURS) TAKE AS DIRECTED FOR 28 DAYS
     Route: 048

REACTIONS (1)
  - Malaise [Unknown]
